FAERS Safety Report 22110501 (Version 1)
Quarter: 2023Q1

REPORT INFORMATION
  Report Type: Spontaneous
  Country: CN (occurrence: CN)
  Receive Date: 20230317
  Receipt Date: 20230317
  Transmission Date: 20230418
  Serious: Yes (Hospitalization, Other)
  Sender: FDA-Public Use
  Company Number: None

PATIENT
  Age: 56 Year
  Sex: Female
  Weight: 75 kg

DRUGS (3)
  1. CYCLOPHOSPHAMIDE [Suspect]
     Active Substance: CYCLOPHOSPHAMIDE
     Indication: Breast cancer female
     Dosage: 0.9 G, QD (AT 12:00 AM), CYCLE 6, ADJUVANT CHEMOTHERAPY, TC REGIMEN
     Route: 041
     Dates: start: 20230223, end: 20230223
  2. PACLITAXEL [Suspect]
     Active Substance: PACLITAXEL
     Indication: Breast cancer female
     Dosage: 270 MG, QD (AT 12:00 AM), CYCLE 6, ADJUVANT CHEMOTHERAPY, TC REGIMEN,
     Route: 041
     Dates: start: 20230223, end: 20230223
  3. DEXAMETHASONE SODIUM PHOSPHATE [Suspect]
     Active Substance: DEXAMETHASONE SODIUM PHOSPHATE
     Dosage: 5 MG
     Route: 030
     Dates: start: 20230224

REACTIONS (20)
  - Muscular weakness [Recovering/Resolving]
  - Confusional state [Recovering/Resolving]
  - Tremor [Recovering/Resolving]
  - Palpitations [Recovering/Resolving]
  - Pruritus [Recovering/Resolving]
  - Seizure [Unknown]
  - Loss of consciousness [Unknown]
  - Panic reaction [Unknown]
  - Atrioventricular block first degree [Unknown]
  - Aortic valve calcification [Unknown]
  - Chest discomfort [Unknown]
  - Discomfort [Unknown]
  - Left ventricular dysfunction [Unknown]
  - Dyspnoea [Unknown]
  - Asthenia [Unknown]
  - Hyperhidrosis [Unknown]
  - Dizziness [Unknown]
  - Vision blurred [Unknown]
  - Nausea [Unknown]
  - Vomiting [Unknown]

NARRATIVE: CASE EVENT DATE: 20230224
